FAERS Safety Report 4739561-1 (Version None)
Quarter: 2005Q3

REPORT INFORMATION
  Report Type: 
  Country: None (occurrence: None)
  Receive Date: 20050809
  Receipt Date: 20050809
  Transmission Date: 20060218
  Serious: No
  Sender: FDA-Public Use
  Company Number: None

PATIENT
  Sex: Male

DRUGS (5)
  1. HYDROXYZINE HCL [Suspect]
     Dosage: 10 MG PO TID
     Route: 048
     Dates: start: 20041223
  2. FLONASE [Concomitant]
  3. PATANOL [Concomitant]
  4. LISINOPRIL [Concomitant]
  5. TOBRADEX [Concomitant]

REACTIONS (3)
  - DIZZINESS [None]
  - FEELING ABNORMAL [None]
  - PALPITATIONS [None]
